FAERS Safety Report 9243463 (Version 1)
Quarter: 2013Q2

REPORT INFORMATION
  Report Type: Spontaneous
  Country: FR (occurrence: FR)
  Receive Date: 20130422
  Receipt Date: 20130422
  Transmission Date: 20140414
  Serious: Yes (Hospitalization)
  Sender: FDA-Public Use
  Company Number: FR-B.I. PHARMACEUTICALS,INC./RIDGEFIELD-2013-FF-01180FF

PATIENT
  Age: 33 Year
  Sex: Female

DRUGS (3)
  1. VIRAMUNE [Suspect]
     Indication: HIV INFECTION
     Dosage: 200 MG
     Route: 048
     Dates: start: 20120622, end: 20120703
  2. VIRAMUNE [Suspect]
     Dosage: 400 MG
     Route: 048
     Dates: start: 20120704, end: 20120718
  3. TRUVADA [Suspect]
     Indication: HIV INFECTION
     Route: 048
     Dates: start: 20120622

REACTIONS (7)
  - Face oedema [Recovered/Resolved]
  - Pyrexia [Recovered/Resolved]
  - Rash [Recovered/Resolved]
  - White blood cell count decreased [Recovered/Resolved]
  - Lymphocyte count decreased [Recovered/Resolved]
  - Band neutrophil count decreased [Recovered/Resolved]
  - Transaminases increased [Recovered/Resolved]
